FAERS Safety Report 6119171-4 (Version None)
Quarter: 2009Q1

REPORT INFORMATION
  Report Type: 
  Country: None (occurrence: None)
  Receive Date: 20090316
  Receipt Date: 20090303
  Transmission Date: 20090719
  Serious: Yes (Other)
  Sender: FDA-Public Use
  Company Number: US-ROCHE-607373

PATIENT
  Sex: Female

DRUGS (8)
  1. BONIVA [Suspect]
     Indication: DRUG USE FOR UNKNOWN INDICATION
     Route: 065
     Dates: start: 20080801
  2. PRENIVAL [Concomitant]
  3. PRENIVAL [Concomitant]
  4. GLUCOSAMINE SULFATE/CHONDROITIN [Concomitant]
  5. VERAMYST [Concomitant]
  6. MUCINEX [Concomitant]
  7. SINGULAIR [Concomitant]
  8. VITAMIN E [Concomitant]

REACTIONS (1)
  - MACULAR HOLE [None]
